FAERS Safety Report 26005621 (Version 1)
Quarter: 2025Q4

REPORT INFORMATION
  Report Type: Spontaneous
  Country: CN (occurrence: CN)
  Receive Date: 20251106
  Receipt Date: 20251106
  Transmission Date: 20260117
  Serious: Yes (Other)
  Sender: SANOFI AVENTIS
  Company Number: CN-DialogSolutions-SAAVPROD-PI835931-C1

PATIENT
  Age: 51 Year
  Sex: Male

DRUGS (28)
  1. OXALIPLATIN [Suspect]
     Active Substance: OXALIPLATIN
     Indication: Metastases to liver
     Dosage: 100 MG/M2, Q3W, DAY1
     Route: 042
     Dates: start: 20220216, end: 202204
  2. OXALIPLATIN [Suspect]
     Active Substance: OXALIPLATIN
     Indication: Gastric cancer stage IV
     Dosage: 150 MG
     Route: 042
  3. OXALIPLATIN [Suspect]
     Active Substance: OXALIPLATIN
     Indication: Adenocarcinoma gastric
     Dosage: 160 MG, QCY
     Route: 042
     Dates: start: 20220216, end: 2022
  4. OXALIPLATIN [Suspect]
     Active Substance: OXALIPLATIN
     Dosage: 160 MG, QCY
     Route: 042
     Dates: start: 20220309, end: 2022
  5. OXALIPLATIN [Suspect]
     Active Substance: OXALIPLATIN
     Dosage: 160 MG, QCY
     Route: 042
     Dates: start: 20220404, end: 2022
  6. OXALIPLATIN [Suspect]
     Active Substance: OXALIPLATIN
     Dosage: 150 MG, QCY
     Route: 042
     Dates: start: 20220503, end: 2022
  7. OXALIPLATIN [Suspect]
     Active Substance: OXALIPLATIN
     Dosage: 150 MG, QCY
     Route: 042
     Dates: start: 20220528, end: 2022
  8. OXALIPLATIN [Suspect]
     Active Substance: OXALIPLATIN
     Dosage: 150 MG, QCY
     Route: 042
     Dates: start: 20220626
  9. PACLITAXEL [Suspect]
     Active Substance: PACLITAXEL
     Indication: Metastases to liver
     Dosage: 160 MG/M2, Q3W, DAY 1
     Route: 042
     Dates: start: 2022
  10. PACLITAXEL [Suspect]
     Active Substance: PACLITAXEL
     Indication: Gastric cancer stage IV
     Dosage: 250 MG, QCY
     Dates: start: 20220216, end: 2022
  11. PACLITAXEL [Suspect]
     Active Substance: PACLITAXEL
     Indication: Adenocarcinoma gastric
     Dosage: 250 MG, QCY
     Dates: start: 20220309, end: 2022
  12. PACLITAXEL [Suspect]
     Active Substance: PACLITAXEL
     Dosage: 250 MG, QCY
     Dates: start: 20220404, end: 2022
  13. PACLITAXEL [Suspect]
     Active Substance: PACLITAXEL
     Dosage: 250 MG, QCY
     Dates: start: 20220503, end: 2022
  14. PACLITAXEL [Suspect]
     Active Substance: PACLITAXEL
     Dosage: 250 MG, QCY
     Dates: start: 20220528, end: 2022
  15. PACLITAXEL [Suspect]
     Active Substance: PACLITAXEL
     Dosage: 250 MG, QCY
     Dates: start: 20220626, end: 2022
  16. TS-1 [Suspect]
     Active Substance: GIMERACIL\OTERACIL POTASSIUM\TEGAFUR
     Indication: Metastases to liver
     Dosage: 40 MG/M2, BID. D1-D14
     Route: 048
     Dates: start: 20220216
  17. TS-1 [Suspect]
     Active Substance: GIMERACIL\OTERACIL POTASSIUM\TEGAFUR
     Indication: Gastric cancer stage IV
     Dosage: 60 MG, BID (1ST CYCLE)
     Dates: start: 20220216
  18. TS-1 [Suspect]
     Active Substance: GIMERACIL\OTERACIL POTASSIUM\TEGAFUR
     Indication: Adenocarcinoma gastric
     Dosage: 60 MG, BID (2ND CYCLE)
     Dates: start: 20220309
  19. TS-1 [Suspect]
     Active Substance: GIMERACIL\OTERACIL POTASSIUM\TEGAFUR
     Dosage: 60 MG, BID (3RD CYCLE)
     Dates: start: 20220404
  20. TS-1 [Suspect]
     Active Substance: GIMERACIL\OTERACIL POTASSIUM\TEGAFUR
     Dosage: 60 MG, BID (4TH CYCLE)
     Dates: start: 20220503
  21. TS-1 [Suspect]
     Active Substance: GIMERACIL\OTERACIL POTASSIUM\TEGAFUR
     Dosage: 60 MG, BID (5TH CYCLE)
     Dates: start: 20220528
  22. TS-1 [Suspect]
     Active Substance: GIMERACIL\OTERACIL POTASSIUM\TEGAFUR
     Dosage: 60 MG, BID (6TH CYCLE)
     Dates: start: 20220626
  23. SINTILIMAB [Concomitant]
     Active Substance: SINTILIMAB
     Indication: Metastases to liver
     Dosage: 0.2 G, QCY
     Route: 042
     Dates: start: 20220216, end: 2022
  24. SINTILIMAB [Concomitant]
     Active Substance: SINTILIMAB
     Indication: Gastric cancer stage IV
     Dosage: 0.2 G, QCY
     Route: 042
     Dates: start: 20220303, end: 2022
  25. SINTILIMAB [Concomitant]
     Active Substance: SINTILIMAB
     Indication: Adenocarcinoma gastric
     Dosage: 0.2 G, QCY
     Route: 042
     Dates: start: 20220404, end: 2022
  26. SINTILIMAB [Concomitant]
     Active Substance: SINTILIMAB
     Dosage: 0.2 G, QCY
     Route: 042
     Dates: start: 20220503, end: 2022
  27. SINTILIMAB [Concomitant]
     Active Substance: SINTILIMAB
     Dosage: 0.2 G, QCY
     Route: 042
     Dates: start: 20220528, end: 2022
  28. SINTILIMAB [Concomitant]
     Active Substance: SINTILIMAB
     Dosage: 0.2 G, QCY
     Route: 042
     Dates: start: 20220626, end: 2022

REACTIONS (2)
  - Blood disorder [Recovered/Resolved]
  - Off label use [Recovered/Resolved]

NARRATIVE: CASE EVENT DATE: 20220101
